FAERS Safety Report 26055392 (Version 1)
Quarter: 2025Q4

REPORT INFORMATION
  Report Type: Spontaneous
  Country: EU (occurrence: EU)
  Receive Date: 20251117
  Receipt Date: 20251117
  Transmission Date: 20260118
  Serious: Yes (Other)
  Sender: SK LIFE SCIENCE
  Company Number: EU-ACRAF-2025-039500

PATIENT

DRUGS (2)
  1. XCOPRI [Suspect]
     Active Substance: CENOBAMATE
     Indication: Partial seizures
     Dosage: (200 MILLIGRAM(S), 1 IN 1 DAY
     Route: 065
  2. OXCARBAZEPINE [Concomitant]
     Active Substance: OXCARBAZEPINE
     Indication: Product used for unknown indication
     Dosage: 600 MG 2 X
     Route: 065

REACTIONS (7)
  - Neutropenia [Unknown]
  - Lymphocyte count [Unknown]
  - Erythema [Unknown]
  - Dyspnoea [Unknown]
  - Nausea [Unknown]
  - Lymphadenopathy [Unknown]
  - Vomiting [Unknown]
